FAERS Safety Report 20519852 (Version 9)
Quarter: 2022Q3

REPORT INFORMATION
  Report Type: Spontaneous
  Country: BR (occurrence: BR)
  Receive Date: 20220225
  Receipt Date: 20220711
  Transmission Date: 20221026
  Serious: Yes (Other)
  Sender: FDA-Public Use
  Company Number: BR-NOVARTISPH-NVSC2022BR021440

PATIENT
  Age: 10 Year
  Sex: Female
  Weight: 47 kg

DRUGS (13)
  1. OMNITROPE [Suspect]
     Active Substance: SOMATROPIN
     Indication: Growth hormone deficiency
     Dosage: UNK
     Route: 065
     Dates: start: 2019
  2. OMNITROPE [Suspect]
     Active Substance: SOMATROPIN
     Indication: Puberty
     Dosage: 1.8 MG,  (7 TIMES PER WEEK)
     Route: 058
     Dates: start: 202002, end: 202106
  3. OMNITROPE [Suspect]
     Active Substance: SOMATROPIN
     Dosage: 10 MG
     Route: 065
  4. OMNITROPE [Suspect]
     Active Substance: SOMATROPIN
     Dosage: 10 MG (BLUE PEN)
     Route: 065
     Dates: start: 202004
  5. OMNITROPE [Suspect]
     Active Substance: SOMATROPIN
     Dosage: 15 MG (GREEN PEN)
     Route: 065
     Dates: start: 202011
  6. OMNITROPE [Suspect]
     Active Substance: SOMATROPIN
     Dosage: UNK, (GREEN PEN)
     Route: 065
     Dates: start: 202102, end: 20210712
  7. OMNITROPE [Suspect]
     Active Substance: SOMATROPIN
     Dosage: 10 MG
     Route: 065
  8. NORDITROPIN [Suspect]
     Active Substance: SOMATROPIN
     Indication: Growth hormone deficiency
     Dosage: UNK (INJECTABLE SOLUTION)
     Route: 065
     Dates: start: 202001
  9. LEUPRORELINA [Concomitant]
     Indication: Delayed puberty
     Dosage: 1 DOSAGE FORM (1 APPLICATION, EVERY 15 DAYS)
     Route: 065
     Dates: start: 202002
  10. LEUPROLIDE ACETATE [Concomitant]
     Active Substance: LEUPROLIDE ACETATE
     Indication: Growth retardation
     Dosage: UNK, (INTRAMUSCULAR AND SUBCUTANEOUS), FREQUENCY (28/28 DAYS)
     Route: 030
     Dates: start: 202002, end: 202010
  11. LEUPROLIDE ACETATE [Concomitant]
     Active Substance: LEUPROLIDE ACETATE
     Dosage: 7.5 MG (INTRAMUSCULAR AND SUBCUTANEOUS), FREQUENCY (28/28 DAYS)
     Route: 042
     Dates: start: 202005, end: 202010
  12. LEUPROLIDE ACETATE [Concomitant]
     Active Substance: LEUPROLIDE ACETATE
     Dosage: UNK (INTRAMUSCULAR AND SUBCUTANEOUS), FREQUENCY (15/15 DAYS)
     Route: 042
     Dates: start: 202008, end: 202010
  13. ELIGARD [Concomitant]
     Active Substance: LEUPROLIDE ACETATE
     Indication: Growth retardation
     Dosage: UNK CONCENTRATION (45), (INTRAMUSCULAR AND SUBCUTANEOUS), FREQUENCY (2 HALFYEARLY)
     Route: 042
     Dates: end: 202010

REACTIONS (9)
  - Growth retardation [Unknown]
  - Bell^s palsy [Recovered/Resolved]
  - Peripheral nerve palsy [Recovered/Resolved]
  - Device leakage [Recovered/Resolved]
  - Incorrect dose administered [Recovered/Resolved]
  - Device leakage [Unknown]
  - Injection site abscess sterile [Recovered/Resolved]
  - Product container issue [Unknown]
  - Drug ineffective [Unknown]

NARRATIVE: CASE EVENT DATE: 20200401
